FAERS Safety Report 9153518 (Version 1)
Quarter: 2013Q1

REPORT INFORMATION
  Report Type: Spontaneous
  Country: US (occurrence: None)
  Receive Date: 20130306
  Receipt Date: 20130306
  Transmission Date: 20140127
  Serious: Yes (Life-Threatening)
  Sender: FDA-Public Use
  Company Number: None

PATIENT
  Age: 42 Year
  Sex: Female
  Weight: 81.65 kg

DRUGS (2)
  1. AMBIEN [Suspect]
  2. AMBIEN--ZOLPIDUM TARTATE [Concomitant]

REACTIONS (4)
  - Somnambulism [None]
  - Alcohol use [None]
  - Crime [None]
  - Suicidal ideation [None]
